FAERS Safety Report 8408441-2 (Version None)
Quarter: 2012Q2

REPORT INFORMATION
  Report Type: 
  Country: None (occurrence: None)
  Receive Date: 20120604
  Receipt Date: 20120525
  Transmission Date: 20120825
  Serious: Yes (Other)
  Sender: FDA-Public Use
  Company Number: US-ABBOTT-12P-163-0940053-00

PATIENT
  Sex: Male

DRUGS (1)
  1. LUPRON [Suspect]
     Indication: PRECOCIOUS PUBERTY
     Dates: start: 20111201

REACTIONS (5)
  - SOMNOLENCE [None]
  - FATIGUE [None]
  - HEADACHE [None]
  - DIZZINESS [None]
  - DECREASED APPETITE [None]
